FAERS Safety Report 8871703 (Version 2)
Quarter: 2012Q4

REPORT INFORMATION
  Report Type: 
  Country: CZ (occurrence: CZ)
  Receive Date: 20121029
  Receipt Date: 20121102
  Transmission Date: 20130627
  Serious: Yes (Other)
  Sender: FDA-Public Use
  Company Number: PHHY2012CZ096566

PATIENT
  Age: 71 Year
  Sex: Male

DRUGS (1)
  1. ZOMETA [Suspect]
     Indication: METASTASES TO BONE
     Dosage: UNK
     Route: 042
     Dates: start: 20060918, end: 20080909

REACTIONS (3)
  - Osteonecrosis of jaw [Not Recovered/Not Resolved]
  - Metastases to lymph nodes [Unknown]
  - Therapeutic response decreased [Unknown]
